FAERS Safety Report 5373272-7 (Version None)
Quarter: 2007Q2

REPORT INFORMATION
  Report Type: 
  Country: None (occurrence: None)
  Receive Date: 20070628
  Receipt Date: 20070615
  Transmission Date: 20071010
  Serious: Yes (Other)
  Sender: FDA-Public Use
  Company Number: CH-JNJFOC-20070601459

PATIENT
  Sex: Male
  Weight: 70 kg

DRUGS (8)
  1. DURAGESIC-100 [Suspect]
     Route: 062
  2. DURAGESIC-100 [Suspect]
     Indication: PAIN
     Route: 062
  3. BLOPRESS [Concomitant]
     Indication: HYPERTENSION
     Route: 048
  4. NEXIUM [Concomitant]
     Indication: OESOPHAGITIS
     Route: 048
  5. NORVASC [Concomitant]
     Indication: HYPERTENSION
     Route: 048
  6. STILLNOX [Concomitant]
     Indication: INSOMNIA
     Route: 048
  7. ASPIRIN [Concomitant]
     Indication: ARTERIAL INSUFFICIENCY
     Route: 048
  8. PLAVIX [Concomitant]
     Indication: ARTERIAL INSUFFICIENCY
     Route: 048

REACTIONS (4)
  - BALANCE DISORDER [None]
  - BRADYCARDIA [None]
  - FALL [None]
  - HYPOTENSION [None]
